FAERS Safety Report 8312342-8 (Version None)
Quarter: 2012Q2

REPORT INFORMATION
  Report Type: 
  Country: None (occurrence: None)
  Receive Date: 20120425
  Receipt Date: 20120418
  Transmission Date: 20120825
  Serious: Yes (Other)
  Sender: FDA-Public Use
  Company Number: IT-B.I. PHARMACEUTICALS,INC./RIDGEFIELD-2012-EU-01812BY

PATIENT
  Age: 60 Year
  Sex: Male

DRUGS (1)
  1. TELMISARTAN [Suspect]
     Indication: HYPERTENSION
     Dosage: 40 MG
     Route: 048
     Dates: start: 20070430, end: 20110603

REACTIONS (6)
  - DYSURIA [None]
  - OROPHARYNGEAL PAIN [None]
  - CYSTITIS [None]
  - PHARYNGITIS [None]
  - LARYNGEAL OEDEMA [None]
  - RENAL IMPAIRMENT [None]
